FAERS Safety Report 14279606 (Version 3)
Quarter: 2017Q4

REPORT INFORMATION
  Report Type: Report from Study
  Country: DE (occurrence: DE)
  Receive Date: 20171212
  Receipt Date: 20171229
  Transmission Date: 20180321
  Serious: Yes (Hospitalization, Other)
  Sender: FDA-Public Use
  Company Number: DE-TEVA-2017-DE-832508

PATIENT
  Age: 69 Year
  Sex: Male
  Weight: 90 kg

DRUGS (25)
  1. ZELBORAF [Suspect]
     Active Substance: VEMURAFENIB
     Indication: METASTATIC MALIGNANT MELANOMA
     Route: 048
     Dates: start: 20170826, end: 20170828
  2. DEXAMETHASONE. [Suspect]
     Active Substance: DEXAMETHASONE
     Indication: VISION BLURRED
  3. RAMIPRIL. [Concomitant]
     Active Substance: RAMIPRIL
     Indication: HYPERTENSION
  4. METOPROLOL. [Concomitant]
     Active Substance: METOPROLOL
     Indication: HYPERTENSION
  5. ZELBORAF [Suspect]
     Active Substance: VEMURAFENIB
     Route: 048
     Dates: start: 20170907
  6. DEXAMETHASONE. [Suspect]
     Active Substance: DEXAMETHASONE
     Indication: METASTASES TO CENTRAL NERVOUS SYSTEM
     Route: 048
     Dates: start: 20170922
  7. DEXAMETHASONE. [Suspect]
     Active Substance: DEXAMETHASONE
     Indication: PROCEDURAL HEADACHE
     Route: 048
     Dates: start: 20170828, end: 20170831
  8. ZELBORAF [Suspect]
     Active Substance: VEMURAFENIB
     Dosage: DOSE 240 MG X 4 (960 MG)
     Route: 048
     Dates: start: 20170823, end: 20170826
  9. DEXAMETHASONE. [Suspect]
     Active Substance: DEXAMETHASONE
     Indication: PROCEDURAL NAUSEA
     Route: 048
     Dates: start: 20170901, end: 20170903
  10. SIMVASTATIN. [Concomitant]
     Active Substance: SIMVASTATIN
     Indication: VASCULAR GRAFT
     Route: 048
     Dates: start: 20150501
  11. COBIMETINIB. [Suspect]
     Active Substance: COBIMETINIB
     Dosage: DOSE 20 MG X 3 (60 MG)
     Route: 048
     Dates: start: 20170823, end: 20170828
  12. ZELBORAF [Suspect]
     Active Substance: VEMURAFENIB
     Route: 048
     Dates: start: 20170904, end: 20170906
  13. ASPIRIN. [Concomitant]
     Active Substance: ASPIRIN
     Indication: VASCULAR GRAFT
     Route: 048
     Dates: start: 20140501
  14. COBIMETINIB. [Suspect]
     Active Substance: COBIMETINIB
     Indication: METASTATIC MALIGNANT MELANOMA
     Route: 048
     Dates: start: 20170831, end: 20170903
  15. ZELBORAF [Suspect]
     Active Substance: VEMURAFENIB
     Route: 048
     Dates: start: 20170831, end: 20170903
  16. NOVAMINSULFON [Concomitant]
     Active Substance: METAMIZOLE
     Route: 048
     Dates: start: 20170823
  17. COBIMETINIB. [Suspect]
     Active Substance: COBIMETINIB
     Route: 048
     Dates: start: 20170904
  18. DEXAMETHASONE. [Suspect]
     Active Substance: DEXAMETHASONE
     Indication: PROCEDURAL VOMITING
     Route: 048
     Dates: start: 20170904, end: 20170921
  19. LEVETIRACETAM. [Concomitant]
     Active Substance: LEVETIRACETAM
     Indication: METASTASES TO CENTRAL NERVOUS SYSTEM
     Route: 048
  20. SIMVASTATIN. [Concomitant]
     Active Substance: SIMVASTATIN
     Indication: HYPERTENSION
  21. PANTOPRAZOL [Concomitant]
     Active Substance: PANTOPRAZOLE SODIUM
     Route: 048
     Dates: start: 20170201
  22. RAMIPRIL. [Concomitant]
     Active Substance: RAMIPRIL
     Indication: VASCULAR GRAFT
     Route: 048
     Dates: start: 20140501
  23. ASPIRIN. [Concomitant]
     Active Substance: ASPIRIN
     Indication: HYPERTENSION
  24. METOPROLOL. [Concomitant]
     Active Substance: METOPROLOL
     Indication: VASCULAR GRAFT
     Route: 048
     Dates: start: 20140501
  25. MONO EMBOLEX [Concomitant]
     Active Substance: CERTOPARIN SODIUM
     Indication: PROPHYLAXIS
     Route: 058
     Dates: start: 20170131

REACTIONS (10)
  - Photosensitivity reaction [Unknown]
  - Skin hypopigmentation [Not Recovered/Not Resolved]
  - Hyperglycaemia [Recovering/Resolving]
  - Retinal cyst [Not Recovered/Not Resolved]
  - Skin infection [Unknown]
  - Vision blurred [Not Recovered/Not Resolved]
  - Subcutaneous abscess [Recovered/Resolved]
  - Fatigue [Not Recovered/Not Resolved]
  - Dermal cyst [Not Recovered/Not Resolved]
  - Brain oedema [Recovered/Resolved]

NARRATIVE: CASE EVENT DATE: 20170823
